FAERS Safety Report 10379816 (Version 1)
Quarter: 2014Q3

REPORT INFORMATION
  Report Type: Spontaneous
  Country: US (occurrence: US)
  Receive Date: 20140812
  Receipt Date: 20140812
  Transmission Date: 20150326
  Serious: Yes (Hospitalization)
  Sender: FDA-Public Use
  Company Number: US-B.I. PHARMACEUTICALS,INC./RIDGEFIELD-2014-BI-36158BP

PATIENT
  Age: 84 Year
  Sex: Male

DRUGS (14)
  1. DOXAZOSIN [Concomitant]
     Active Substance: DOXAZOSIN\DOXAZOSIN MESYLATE
     Dosage: 4 MG
     Route: 065
  2. PRESERVISION [Concomitant]
     Dosage: 2 ANZ
     Route: 065
  3. ACETAZOLAMIDE. [Concomitant]
     Active Substance: ACETAZOLAMIDE
     Indication: GLAUCOMA
     Dosage: 1000 MG
     Route: 065
  4. LASIX [Concomitant]
     Active Substance: FUROSEMIDE
     Dosage: 20 MG
     Route: 065
  5. TRAVATAN [Concomitant]
     Active Substance: TRAVOPROST
     Dosage: ROUTE: 0.004% OPHTHALMIC SOLUTION
     Route: 050
  6. POTASSIUM CHLORIDE. [Concomitant]
     Active Substance: POTASSIUM CHLORIDE
     Dosage: 40 MEQ
     Route: 065
  7. TIMOLOL [Concomitant]
     Active Substance: TIMOLOL
     Dosage: 0.5 PERCENT GEL
     Route: 065
  8. DORZOLAMIDE [Concomitant]
     Active Substance: DORZOLAMIDE
     Dosage: 2 PERCENT
     Route: 065
  9. LASIX [Concomitant]
     Active Substance: FUROSEMIDE
     Route: 065
  10. PRADAXA [Suspect]
     Active Substance: DABIGATRAN ETEXILATE MESYLATE
     Indication: ATRIAL FIBRILLATION
     Dosage: 300 MG
     Route: 065
     Dates: start: 2012
  11. NEURONTIN [Concomitant]
     Active Substance: GABAPENTIN
     Dosage: 1200 MG
     Route: 065
  12. LISINOPRIL. [Concomitant]
     Active Substance: LISINOPRIL
     Dosage: 20 MG
     Route: 065
  13. FISH OIL SUPPLEMENT [Concomitant]
     Dosage: 1200 MG
     Route: 065
  14. MONOCYCLINE [Concomitant]
     Dosage: 100 MG
     Route: 065

REACTIONS (4)
  - Epistaxis [Unknown]
  - Coagulopathy [Unknown]
  - Upper gastrointestinal haemorrhage [Unknown]
  - Anaemia [Unknown]

NARRATIVE: CASE EVENT DATE: 201206
